FAERS Safety Report 5883545-7 (Version None)
Quarter: 2008Q3

REPORT INFORMATION
  Report Type: 
  Country: None (occurrence: None)
  Receive Date: 20080915
  Receipt Date: 20080908
  Transmission Date: 20090109
  Serious: Yes (Other)
  Sender: FDA-Public Use
  Company Number: PHHY2008BR20797

PATIENT
  Age: 52 Year
  Sex: Male
  Weight: 87 kg

DRUGS (4)
  1. TOFRANIL [Suspect]
     Dosage: 10 MG
     Route: 048
  2. TOFRANIL [Suspect]
     Dosage: 5 TABLETS OF 25 MG AT NIGHT
     Route: 048
  3. TOFRANIL [Suspect]
     Dosage: 150 MG/UNK
  4. RIVOTRIL [Concomitant]
     Indication: SLEEP DISORDER
     Dosage: 8 DROPS BEFORE SLEEPING
     Route: 048

REACTIONS (12)
  - ABNORMAL BEHAVIOUR [None]
  - AGGRESSION [None]
  - ANTISOCIAL BEHAVIOUR [None]
  - BEDRIDDEN [None]
  - BLOOD CHOLESTEROL INCREASED [None]
  - BLOOD GLUCOSE ABNORMAL [None]
  - BLOOD TRIGLYCERIDES INCREASED [None]
  - CRYING [None]
  - DEPRESSION [None]
  - EUPHORIC MOOD [None]
  - SUICIDE ATTEMPT [None]
  - WEIGHT DECREASED [None]
